FAERS Safety Report 6875993-3 (Version None)
Quarter: 2010Q3

REPORT INFORMATION
  Report Type: 
  Country: None (occurrence: None)
  Receive Date: 20100727
  Receipt Date: 20100714
  Transmission Date: 20110219
  Serious: Yes (Other)
  Sender: FDA-Public Use
  Company Number: JP-PFIZER INC-2010091195

PATIENT
  Age: 68 Year
  Sex: Male

DRUGS (2)
  1. BANAN [Suspect]
     Dosage: UNK
     Dates: start: 20071201, end: 20071201
  2. CRAVIT [Suspect]
     Dosage: 100 MG, UNK
     Dates: start: 20070801, end: 20071201

REACTIONS (2)
  - OCULOMUCOCUTANEOUS SYNDROME [None]
  - TOXIC EPIDERMAL NECROLYSIS [None]
